FAERS Safety Report 14167514 (Version 1)
Quarter: 2017Q4

REPORT INFORMATION
  Report Type: Spontaneous
  Country: US (occurrence: US)
  Receive Date: 20171107
  Receipt Date: 20171107
  Transmission Date: 20180321
  Serious: No
  Sender: FDA-Public Use
  Company Number: US-BAUSCH-BL-2017-021851

PATIENT
  Sex: Female

DRUGS (11)
  1. UCERIS [Suspect]
     Active Substance: BUDESONIDE
     Indication: IRRITABLE BOWEL SYNDROME
     Route: 065
  2. FLUOXETINE [Concomitant]
     Active Substance: FLUOXETINE HYDROCHLORIDE
     Indication: PRODUCT USED FOR UNKNOWN INDICATION
  3. NEURONTIN [Concomitant]
     Active Substance: GABAPENTIN
     Indication: PRODUCT USED FOR UNKNOWN INDICATION
     Route: 048
  4. NICORETTE [Concomitant]
     Active Substance: NICOTINE
  5. ASPIRIN. [Concomitant]
     Active Substance: ASPIRIN
     Indication: PRODUCT USED FOR UNKNOWN INDICATION
     Route: 048
  6. FISH OIL [Concomitant]
     Active Substance: FISH OIL
     Indication: PRODUCT USED FOR UNKNOWN INDICATION
     Dosage: 120-180 MG DAILY
  7. MULTIVITAMIN [Concomitant]
     Active Substance: VITAMINS
     Indication: PRODUCT USED FOR UNKNOWN INDICATION
  8. NICORETTE [Concomitant]
     Active Substance: NICOTINE
     Indication: PRODUCT USED FOR UNKNOWN INDICATION
  9. UCERIS [Suspect]
     Active Substance: BUDESONIDE
     Indication: COLITIS MICROSCOPIC
  10. LIPITOR [Concomitant]
     Active Substance: ATORVASTATIN CALCIUM
     Indication: PRODUCT USED FOR UNKNOWN INDICATION
  11. NAPROXEN. [Concomitant]
     Active Substance: NAPROXEN
     Indication: PRODUCT USED FOR UNKNOWN INDICATION
     Dosage: TWICE A DAY WITH MEAL
     Route: 048

REACTIONS (1)
  - Off label use [Unknown]
